FAERS Safety Report 7639581-3 (Version None)
Quarter: 2011Q3

REPORT INFORMATION
  Report Type: 
  Country: None (occurrence: None)
  Receive Date: 20110727
  Receipt Date: 20110721
  Transmission Date: 20111222
  Serious: Yes (Other)
  Sender: FDA-Public Use
  Company Number: JP-ABBOTT-11P-087-0731433-00

PATIENT
  Sex: Female
  Weight: 35 kg

DRUGS (17)
  1. CLARITHROMYCIN [Suspect]
     Indication: PRODUCTIVE COUGH
  2. AN EXTRACT FROM INFLAMMATORY RABBIT SKIN INOCULATED BY VACCINIA VIRUS [Concomitant]
     Indication: PRODUCT USED FOR UNKNOWN INDICATION
     Route: 048
  3. LOXONIN [Concomitant]
     Indication: RHEUMATOID ARTHRITIS
     Dosage: DAILY DOSE
     Route: 048
     Dates: start: 20070112
  4. LENDORMIN [Concomitant]
     Indication: INSOMNIA
     Dates: start: 20101109
  5. HUMIRA [Concomitant]
     Indication: PRODUCT USED FOR UNKNOWN INDICATION
     Dates: start: 20110501
  6. SIMVASTATIN [Concomitant]
     Indication: PRODUCT USED FOR UNKNOWN INDICATION
     Dosage: 5 MG DAILY DOSE
     Route: 048
     Dates: start: 20091106
  7. ALENDRONATE SODIUM [Concomitant]
     Indication: OSTEOPOROSIS
     Dosage: 35 MG/WEEK
     Route: 048
     Dates: start: 20061207
  8. MOHRUS TAPE [Concomitant]
     Indication: PRODUCT USED FOR UNKNOWN INDICATION
     Route: 062
  9. OMEPRAZOLE [Concomitant]
     Indication: GASTROOESOPHAGEAL REFLUX DISEASE
     Route: 048
     Dates: start: 20070112
  10. FOLIC ACID [Concomitant]
     Indication: RHEUMATOID ARTHRITIS
     Dosage: 5 MG/WEEK
     Route: 048
     Dates: start: 20070112
  11. NEUROTROPIN [Concomitant]
     Indication: RHEUMATOID ARTHRITIS
     Dates: start: 20080711
  12. RIZE [Concomitant]
     Indication: PSYCHOSOMATIC DISEASE
     Dosage: 15 MG DAILY DOSE
     Route: 048
     Dates: start: 20101109
  13. SELBEX [Concomitant]
     Indication: GASTRITIS
     Dosage: 150 MG DAILY DOSE
     Route: 048
     Dates: start: 20101109
  14. CLARITHROMYCIN [Suspect]
     Indication: UPPER RESPIRATORY TRACT INFLAMMATION
     Route: 048
     Dates: start: 20070726, end: 20110610
  15. PURSENNID [Concomitant]
     Indication: CONSTIPATION
     Dosage: 36 MG DAILY DOSE
     Route: 048
     Dates: start: 20101109
  16. RHEUMATREX [Concomitant]
     Indication: RHEUMATOID ARTHRITIS
     Dosage: 6 MG/WEEK
     Route: 048
     Dates: start: 20070112
  17. RHEUMATREX [Concomitant]
     Route: 048

REACTIONS (1)
  - DEAFNESS [None]
